FAERS Safety Report 4757981-6 (Version None)
Quarter: 2005Q3

REPORT INFORMATION
  Report Type: 
  Country: None (occurrence: None)
  Receive Date: 20050826
  Receipt Date: 20041119
  Transmission Date: 20060218
  Serious: Yes (Hospitalization)
  Sender: FDA-Public Use
  Company Number: CIP04002365

PATIENT
  Age: 16 Year
  Sex: Female
  Weight: 75.7 kg

DRUGS (2)
  1. ASACOL [Suspect]
     Indication: COLITIS ULCERATIVE
     Dosage: 800 MG THREE TIMES DAILY, ORAL
     Route: 048
     Dates: start: 20040927, end: 20041018
  2. OXYCODONE AND ACETAMINOPHEN [Concomitant]

REACTIONS (4)
  - ABDOMINAL PAIN [None]
  - DYSPEPSIA [None]
  - PANCREATITIS [None]
  - VOMITING [None]
